FAERS Safety Report 14486015 (Version 4)
Quarter: 2020Q2

REPORT INFORMATION
  Report Type: Spontaneous
  Country: AT (occurrence: AT)
  Receive Date: 20180205
  Receipt Date: 20200506
  Transmission Date: 20200713
  Serious: Yes (Hospitalization, Disabling)
  Sender: FDA-Public Use
  Company Number: AT-CELGENEUS-AUT-20180111073

PATIENT
  Age: 79 Year
  Sex: Female
  Weight: 150 kg

DRUGS (41)
  1. AGAFFIN [Concomitant]
     Indication: CONSTIPATION PROPHYLAXIS
     Dosage: 8 MILLILITER
     Route: 048
     Dates: start: 201702, end: 20180122
  2. PERFALGAN [Concomitant]
     Active Substance: ACETAMINOPHEN
     Indication: BACK PAIN
     Route: 041
     Dates: start: 20180110, end: 20180205
  3. OCTENIDOL [Concomitant]
     Indication: STAPHYLOCOCCAL INFECTION
     Dosage: 1 APPLICATION
     Route: 061
     Dates: start: 20180118, end: 20180122
  4. OCTENISAN [Concomitant]
     Indication: PROPHYLAXIS
  5. LASIX [Concomitant]
     Active Substance: FUROSEMIDE
     Indication: OEDEMA PERIPHERAL
     Dosage: 40 MILLIGRAM
     Route: 048
     Dates: start: 20180119, end: 20180122
  6. AZACITIDINE. [Suspect]
     Active Substance: AZACITIDINE
     Indication: ACUTE MYELOID LEUKAEMIA
     Dosage: 75 MILLIGRAM/SQ. METER
     Route: 058
     Dates: start: 20180116, end: 20180122
  7. NOMEXOR [Concomitant]
     Active Substance: NEBIVOLOL HYDROCHLORIDE
     Indication: HYPERTENSION
     Dosage: 2.5 MILLIGRAM
     Route: 048
     Dates: start: 2013, end: 20180122
  8. AQUAFORIL [Concomitant]
     Indication: PROPHYLAXIS
     Dosage: 1 TABLET
     Route: 048
     Dates: start: 201702, end: 20180122
  9. ALLOPURINOL. [Concomitant]
     Active Substance: ALLOPURINOL
     Indication: PROPHYLAXIS
     Dosage: 300 MILLIGRAM
     Route: 048
     Dates: start: 2013, end: 20180122
  10. PERFALGAN [Concomitant]
     Active Substance: ACETAMINOPHEN
     Indication: PAIN MANAGEMENT
     Dosage: 2 GRAM
     Route: 041
     Dates: start: 20180208, end: 20180216
  11. NOVALGIN [Concomitant]
     Indication: PAIN MANAGEMENT
     Route: 048
     Dates: start: 20180106
  12. PLACEBO [Concomitant]
     Active Substance: UNSPECIFIED INGREDIENT
     Route: 048
     Dates: start: 20180117, end: 20180117
  13. PERFALGAN [Concomitant]
     Active Substance: ACETAMINOPHEN
     Indication: INFLAMMATION
  14. PYRALVEX [Concomitant]
     Active Substance: RHUBARB\SALICYLIC ACID
     Indication: PROPHYLAXIS
  15. OCTENISAN [Concomitant]
     Indication: STAPHYLOCOCCAL INFECTION
     Dosage: 1 APPLICATION
     Route: 045
     Dates: start: 20180118, end: 20180125
  16. LASIX [Concomitant]
     Active Substance: FUROSEMIDE
     Dosage: 40 MILLIGRAM
     Route: 048
     Dates: start: 20180221, end: 20180221
  17. AMPHO MORONAL [Concomitant]
     Active Substance: AMPHOTERICIN B
     Dosage: 6 DOSAGE FORMS
     Route: 048
     Dates: start: 20180129
  18. PLACEBO [Concomitant]
     Active Substance: UNSPECIFIED INGREDIENT
     Route: 048
     Dates: start: 20180118, end: 20180120
  19. DEXPANTHENOL. [Concomitant]
     Active Substance: DEXPANTHENOL
     Indication: INFECTION PROPHYLAXIS
     Dosage: 1 APPLICATION
     Route: 061
     Dates: start: 20180104, end: 20180122
  20. DEXPANTHENOL. [Concomitant]
     Active Substance: DEXPANTHENOL
     Dosage: 1 APPLICATION
     Route: 061
     Dates: start: 20180129
  21. OCTENIDOL [Concomitant]
     Indication: PROPHYLAXIS
  22. LASIX [Concomitant]
     Active Substance: FUROSEMIDE
     Dosage: 20 MILLIGRAM
     Route: 048
     Dates: start: 20180130, end: 20180130
  23. LINEZOLID. [Concomitant]
     Active Substance: LINEZOLID
     Indication: INFECTION PROPHYLAXIS
     Dosage: 1200 MILLIGRAM
     Route: 041
     Dates: start: 20180113, end: 20180122
  24. NOMEXOR [Concomitant]
     Active Substance: NEBIVOLOL HYDROCHLORIDE
     Dosage: 2.5 MILLIGRAM
     Route: 048
     Dates: start: 20180129
  25. FOLSAN [Concomitant]
     Active Substance: FOLIC ACID
     Indication: FOLATE DEFICIENCY
     Dosage: 5 MILLIGRAM
     Route: 048
     Dates: start: 20180101, end: 20180122
  26. PYRALVEX [Concomitant]
     Active Substance: RHUBARB\SALICYLIC ACID
     Indication: STOMATITIS
     Dosage: 1 APPLICATION
     Route: 061
     Dates: start: 20180104, end: 20180122
  27. CEFEPIM [Concomitant]
     Active Substance: CEFEPIME HYDROCHLORIDE
     Indication: INFECTION PROPHYLAXIS
     Dosage: 4 GRAM
     Route: 041
     Dates: start: 20180113, end: 20180122
  28. ZOLDEM [Concomitant]
     Active Substance: ZOLPIDEM TARTRATE
     Indication: SLEEP DISORDER
     Route: 048
     Dates: start: 20180103
  29. DECODERM [Concomitant]
     Active Substance: FLUPREDNIDENE ACETATE
     Indication: INJECTION SITE IRRITATION
     Dosage: 1 APPLICATION,AFTER AZACITIDINE INJECTION
     Route: 061
     Dates: start: 20180118, end: 20180122
  30. TRAVOCORT [Concomitant]
     Active Substance: DIFLUCORTOLONE VALERATE\ISOCONAZOLE NITRATE
     Indication: VAGINAL INFECTION
     Dosage: 1 APPLICATION
     Route: 061
     Dates: start: 20180126
  31. NOVALGIN [Concomitant]
     Indication: BACK PAIN
  32. LASIX [Concomitant]
     Active Substance: FUROSEMIDE
     Dosage: 40 MILLIGRAM
     Route: 048
     Dates: start: 20180206, end: 20180219
  33. RASBURICASE [Concomitant]
     Active Substance: RASBURICASE
     Indication: PROPHYLAXIS
     Route: 041
     Dates: start: 20180102, end: 20180103
  34. ELOMEL ISOTON [Concomitant]
     Indication: PROPHYLAXIS
     Route: 041
     Dates: start: 20180102, end: 20180122
  35. PLACEBO [Concomitant]
     Active Substance: UNSPECIFIED INGREDIENT
     Indication: ACUTE MYELOID LEUKAEMIA
     Route: 048
     Dates: start: 20180116, end: 20180116
  36. LISINOPRIL. [Concomitant]
     Active Substance: LISINOPRIL
     Indication: HYPERTENSION
     Dosage: 10 MILLIGRAM
     Route: 048
     Dates: start: 2013, end: 20180122
  37. CANDIBENE [Concomitant]
     Indication: VAGINAL INFECTION
     Dosage: 1 APPLICATION
     Route: 061
     Dates: start: 20180115, end: 20180125
  38. LASIX [Concomitant]
     Active Substance: FUROSEMIDE
     Dosage: 40 MILLIGRAM
     Route: 048
     Dates: start: 20180220
  39. AMPHO MORONAL [Concomitant]
     Active Substance: AMPHOTERICIN B
     Indication: INFECTION PROPHYLAXIS
     Dosage: 6 DOSAGE FORMS
     Route: 048
     Dates: start: 20180120, end: 20180122
  40. TRAVOCORT [Concomitant]
     Active Substance: DIFLUCORTOLONE VALERATE\ISOCONAZOLE NITRATE
     Indication: NAIL INFECTION
     Dosage: 1 APPLICATION
     Route: 061
     Dates: start: 20180110, end: 20180112
  41. LINEZOLID. [Concomitant]
     Active Substance: LINEZOLID
     Indication: STAPHYLOCOCCAL INFECTION
     Dosage: 1200 MILLIGRAM
     Route: 041
     Dates: start: 20180202, end: 20180208

REACTIONS (1)
  - Cerebrovascular accident [Recovered/Resolved]

NARRATIVE: CASE EVENT DATE: 20180121
